FAERS Safety Report 9336277 (Version 2)
Quarter: 2014Q1

REPORT INFORMATION
  Report Type: Spontaneous
  Country: AU (occurrence: AU)
  Receive Date: 20130607
  Receipt Date: 20140116
  Transmission Date: 20141002
  Serious: Yes (Death, Hospitalization, Other)
  Sender: FDA-Public Use
  Company Number: AU-009507513-1306AUS000697

PATIENT
  Age: 56 Year
  Sex: Male

DRUGS (32)
  1. CASPOFUNGIN ACETATE [Suspect]
     Dosage: 70 MG, QD
     Route: 048
     Dates: start: 20130312
  2. ACYCLOVIR [Suspect]
     Dosage: 350 MG, QD
     Route: 042
     Dates: start: 20130313
  3. AMPHOTERICIN B [Suspect]
     Dosage: 40 MG, QD
     Route: 048
     Dates: start: 20130310
  4. ENOXAPARIN SODIUM [Suspect]
     Dosage: 20 MG, QD
     Route: 058
     Dates: start: 20130309
  5. NEUPOGEN [Suspect]
     Dosage: 300 MICROGRAM, QD
     Route: 058
     Dates: start: 20130312
  6. GANCICLOVIR [Suspect]
     Dosage: 50 MG, QD
     Route: 042
     Dates: start: 20130306, end: 20130311
  7. MAGMIN [Suspect]
     Dosage: 2 DF, BID
     Route: 048
     Dates: start: 20130306
  8. MEROPENEM [Suspect]
     Dosage: 500 MG, BID
     Dates: start: 20130312
  9. ONDANSETRON HYDROCHLORIDE [Suspect]
     Dosage: 4 MG, TID
     Dates: start: 20130309
  10. ACETAMINOPHEN [Suspect]
     Dosage: UNK UNK, PRN
     Route: 048
     Dates: start: 20130307
  11. PIPERACILLIN SODIUM [Suspect]
     Dosage: 4.5 MG, QD
     Route: 042
     Dates: start: 20130311
  12. TAZOBACTAM SODIUM [Suspect]
     Dosage: 4.5 G, QD
     Dates: start: 20130311
  13. SULFAMETHOXAZOLE (+) TRIMETHOPRIM [Suspect]
     Dosage: 3 DF, QW
     Dates: start: 20130219, end: 20130310
  14. VALGANCICLOVIR HYDROCHLORIDE [Suspect]
     Dosage: 450 MG, BID
     Dates: start: 20130305, end: 20130306
  15. VANCOMYCIN HYDROCHLORIDE [Suspect]
     Dosage: 1 G, QD
     Dates: start: 20130312
  16. AMLODIPINE [Concomitant]
     Dosage: 10 MG, UNK
  17. CHLORPHENESIN [Concomitant]
  18. CHOLECALCIFEROL [Concomitant]
  19. HYDROCORTISONE [Concomitant]
     Dosage: 50 MG, UNK
     Route: 042
  20. CYCLOSPORINE [Concomitant]
     Dosage: 300 MG, UNK
  21. FOLIC ACID [Concomitant]
  22. METOCLOPRAMIDE HYDROCHLORIDE [Concomitant]
     Dosage: 10 MG, UNK
  23. MOVICOL [Concomitant]
     Dosage: 1 DF, UNK
  24. MYCOPHENOLATE MOFETIL [Concomitant]
     Dosage: 500 MG, UNK
  25. NOVORAPID [Concomitant]
     Dosage: 24 DF, UNK
  26. NYSTATIN [Concomitant]
     Dosage: UNK
     Dates: start: 20130310
  27. OXYNORM [Concomitant]
     Dosage: 5 MG, UNK
  28. PANTOPRAZOLE [Concomitant]
     Dosage: 20 MG, UNK
  29. PREDNISOLONE [Concomitant]
     Dosage: 15 MG, UNK
  30. RANITIDINE [Concomitant]
     Dosage: 150 MG, UNK
  31. URSODIOL [Concomitant]
     Dosage: 10 MG, UNK
  32. CIPROFLOXACIN [Concomitant]

REACTIONS (3)
  - Pallor [Fatal]
  - Toxic epidermal necrolysis [Fatal]
  - Rash [Fatal]
